FAERS Safety Report 19265568 (Version 2)
Quarter: 2021Q2

REPORT INFORMATION
  Report Type: Spontaneous
  Country: US (occurrence: US)
  Receive Date: 20210517
  Receipt Date: 20210629
  Transmission Date: 20210717
  Serious: Yes (Other)
  Sender: FDA-Public Use
  Company Number: US-TG THERAPEUTICS INC.-TGT001921

PATIENT
  Age: 76 Year
  Sex: Male
  Weight: 55.6 kg

DRUGS (5)
  1. UKONIQ [Suspect]
     Active Substance: UMBRALISIB TOSYLATE
     Dosage: UNK
     Dates: start: 20210525
  2. METHOTREXATE. [Concomitant]
     Active Substance: METHOTREXATE
     Indication: CHRONIC LYMPHOCYTIC LEUKAEMIA
     Dosage: 12 MILLIGRAM, WEEKLY, INTRA?OMAYA
     Dates: start: 202012
  3. UKONIQ [Suspect]
     Active Substance: UMBRALISIB TOSYLATE
     Indication: CHRONIC LYMPHOCYTIC LEUKAEMIA
     Dosage: UNK
     Dates: start: 20210405, end: 20210516
  4. OBINUTUZUMAB. [Concomitant]
     Active Substance: OBINUTUZUMAB
     Indication: CHRONIC LYMPHOCYTIC LEUKAEMIA
     Dosage: UNK
     Dates: start: 20210521
  5. NIVOLUMAB [Suspect]
     Active Substance: NIVOLUMAB
     Indication: CHRONIC LYMPHOCYTIC LEUKAEMIA
     Dosage: 480 MILLIGRAM, ONCE
     Route: 042
     Dates: start: 20210331, end: 20210331

REACTIONS (2)
  - Organ failure [Unknown]
  - Lymphocytosis [Not Recovered/Not Resolved]

NARRATIVE: CASE EVENT DATE: 20210405
